FAERS Safety Report 4717779-1 (Version None)
Quarter: 2005Q3

REPORT INFORMATION
  Report Type: 
  Country: None (occurrence: None)
  Receive Date: 20050718
  Receipt Date: 20050718
  Transmission Date: 20060218
  Serious: Yes (Other)
  Sender: FDA-Public Use
  Company Number: None

PATIENT
  Age: 58 Year
  Sex: Female
  Weight: 62.1428 kg

DRUGS (7)
  1. ACTONEL [Suspect]
     Indication: OSTEOPENIA
     Dosage: 35 MG ORAL ORAL
     Route: 048
     Dates: start: 20040310, end: 20050715
  2. VAGIFEM [Concomitant]
  3. CENTRUM SENIORS [Concomitant]
  4. FOLIC ACID [Concomitant]
  5. VITAMIN E [Concomitant]
  6. ASCORBIC ACID [Concomitant]
  7. CALCITRATE WITH VITAMIN D [Concomitant]

REACTIONS (12)
  - ANXIETY [None]
  - BLOOD CHOLESTEROL INCREASED [None]
  - CORNEAL DISORDER [None]
  - CYST [None]
  - DEPRESSION [None]
  - HYPERSENSITIVITY [None]
  - LOW DENSITY LIPOPROTEIN INCREASED [None]
  - MULTIPLE ALLERGIES [None]
  - OEDEMA PERIPHERAL [None]
  - PANIC ATTACK [None]
  - RASH GENERALISED [None]
  - VISUAL ACUITY REDUCED [None]
